FAERS Safety Report 5509378-9 (Version None)
Quarter: 2007Q4

REPORT INFORMATION
  Report Type: 
  Country: None (occurrence: None)
  Receive Date: 20071107
  Receipt Date: 20071030
  Transmission Date: 20080405
  Serious: Yes (Other)
  Sender: FDA-Public Use
  Company Number: JP-MERCK-0711USA00333

PATIENT
  Age: 54 Year
  Sex: Female

DRUGS (3)
  1. ZETIA [Suspect]
     Indication: HYPERLIPIDAEMIA
     Route: 048
     Dates: start: 20070703
  2. PITAVASTATIN CALCIUM [Concomitant]
     Indication: HYPERLIPIDAEMIA
     Route: 065
     Dates: start: 20051119
  3. OLMESARTAN MEDOXOMIL [Concomitant]
     Route: 065
     Dates: start: 20051119

REACTIONS (1)
  - ACUTE MYOCARDIAL INFARCTION [None]
